FAERS Safety Report 9217891 (Version 1)
Quarter: 2013Q2

REPORT INFORMATION
  Report Type: Spontaneous
  Country: JP (occurrence: JP)
  Receive Date: 20130408
  Receipt Date: 20130408
  Transmission Date: 20140414
  Serious: Yes (Other)
  Sender: FDA-Public Use
  Company Number: JP-PFIZER INC-2013110027

PATIENT
  Sex: 0

DRUGS (2)
  1. LYRICA [Suspect]
     Dosage: 25 MG, 2X/DAY
  2. THYRADIN [Suspect]
     Dosage: UNK

REACTIONS (2)
  - Hypothyroidism [Recovering/Resolving]
  - Constipation [Unknown]
